FAERS Safety Report 7068827-8 (Version None)
Quarter: 2010Q4

REPORT INFORMATION
  Report Type: 
  Country: None (occurrence: None)
  Receive Date: 20101028
  Receipt Date: 20101019
  Transmission Date: 20110411
  Serious: Yes (Other)
  Sender: FDA-Public Use
  Company Number: CHPA2010DE14757

PATIENT
  Sex: Female

DRUGS (3)
  1. IBUPROFEN (NGX) [Suspect]
     Indication: MYALGIA
     Dosage: 600 MG, QD
     Route: 048
     Dates: end: 20100916
  2. IBUPROFEN (NGX) [Suspect]
     Indication: LIGAMENT RUPTURE
  3. TEGRETOL [Suspect]
     Indication: EPILEPSY
     Dosage: 1800 MG, QD
     Route: 048

REACTIONS (3)
  - DIZZINESS [None]
  - HALLUCINATIONS, MIXED [None]
  - SENSORY DISTURBANCE [None]
